FAERS Safety Report 5725916-5 (Version None)
Quarter: 2008Q2

REPORT INFORMATION
  Report Type: 
  Country: None (occurrence: None)
  Receive Date: 20080429
  Receipt Date: 20080411
  Transmission Date: 20081010
  Serious: Yes (Other)
  Sender: FDA-Public Use
  Company Number: 2008PV034851

PATIENT
  Sex: Male

DRUGS (4)
  1. SYMLIN [Suspect]
     Indication: TYPE 1 DIABETES MELLITUS
     Dosage: ; SC
     Route: 058
     Dates: start: 20080301, end: 20080301
  2. SYMLIN [Suspect]
     Indication: TYPE 1 DIABETES MELLITUS
     Dosage: ; SC
     Route: 058
     Dates: start: 20070101, end: 20080301
  3. ASPIRIN [Suspect]
     Dates: start: 19930101, end: 20080301
  4. INSULIN [Concomitant]

REACTIONS (6)
  - ANAPHYLACTIC REACTION [None]
  - DYSPNOEA [None]
  - LIP SWELLING [None]
  - PHARMACEUTICAL PRODUCT COMPLAINT [None]
  - PHARYNGEAL OEDEMA [None]
  - URTICARIA [None]
